FAERS Safety Report 7711812-0 (Version None)
Quarter: 2011Q3

REPORT INFORMATION
  Report Type: 
  Country: None (occurrence: None)
  Receive Date: 20110826
  Receipt Date: 20110818
  Transmission Date: 20111222
  Serious: Yes (Other)
  Sender: FDA-Public Use
  Company Number: JP-ASTELLAS-2011JP005801

PATIENT
  Age: 53 Year
  Sex: Male

DRUGS (3)
  1. INSULIN [Concomitant]
     Indication: DIABETES MELLITUS
     Route: 065
  2. PROTOPIC [Suspect]
     Indication: NEURODERMATITIS
     Route: 061
  3. STEROID [Concomitant]
     Indication: NEURODERMATITIS
     Route: 061

REACTIONS (2)
  - PYODERMA [None]
  - INTENTIONAL DRUG MISUSE [None]
